FAERS Safety Report 17147654 (Version 2)
Quarter: 2020Q1

REPORT INFORMATION
  Report Type: Report from Study
  Country: US (occurrence: US)
  Receive Date: 20191212
  Receipt Date: 20200101
  Transmission Date: 20200409
  Serious: Yes (Other)
  Sender: FDA-Public Use
  Company Number: US-ROCHE-2491355

PATIENT
  Sex: Male
  Weight: 91.71 kg

DRUGS (3)
  1. OCREVUS [Suspect]
     Active Substance: OCRELIZUMAB
     Indication: RELAPSING MULTIPLE SCLEROSIS
     Dosage: 300 MG X 1 FOLLOWED BY 300 MG IN 15 DAYS
     Route: 042
     Dates: start: 20170601
  2. OCREVUS [Suspect]
     Active Substance: OCRELIZUMAB
     Route: 042
     Dates: start: 201806
  3. OCREVUS [Suspect]
     Active Substance: OCRELIZUMAB
     Route: 042
     Dates: start: 201906

REACTIONS (3)
  - Intentional product misuse [Unknown]
  - Urinary tract infection [Recovered/Resolved]
  - Off label use [Unknown]
